FAERS Safety Report 15337000 (Version 2)
Quarter: 2018Q3

REPORT INFORMATION
  Report Type: Report from Study
  Country: CZ (occurrence: CZ)
  Receive Date: 20180831
  Receipt Date: 20180924
  Transmission Date: 20181010
  Serious: Yes (Other)
  Sender: FDA-Public Use
  Company Number: CZ-VELOXIS PHARMACEUTICALS, INC.-2018VELCZ1146

PATIENT
  Age: 54 Year
  Sex: Female

DRUGS (30)
  1. MYCOPHENOLATE MOFETIL. [Suspect]
     Active Substance: MYCOPHENOLATE MOFETIL
     Dosage: 1500 MG, QD
     Route: 065
     Dates: start: 20180316
  2. MYCLAUSEN [Suspect]
     Active Substance: MYCOPHENOLATE MOFETIL
     Dosage: 500 MG, QD
     Route: 065
     Dates: start: 20180522, end: 20180821
  3. CALCIUM [Concomitant]
     Active Substance: CALCIUM
     Indication: OSTEOPOROSIS
     Dosage: 500 MG, QD
     Dates: start: 20180303
  4. URSODEOXYCHOLIC ACID [Concomitant]
     Active Substance: URSODIOL
     Indication: PROPHYLAXIS
     Dosage: 750 MG, QD
     Dates: start: 20180303
  5. VALACICLOVIR [Concomitant]
     Active Substance: VALACYCLOVIR HYDROCHLORIDE
     Indication: PROPHYLAXIS
     Dosage: 1000 MG, QD
     Dates: start: 20180224
  6. ULCOGANT [Concomitant]
     Active Substance: SUCRALFATE
     Indication: PROPHYLAXIS
     Dosage: 4 UNK, UNK
     Route: 065
     Dates: start: 20180227
  7. AMPHO?MORONAL [Concomitant]
     Active Substance: AMPHOTERICIN B
     Indication: PROPHYLAXIS
     Dosage: 20 ML, QD
     Route: 065
     Dates: start: 20180227
  8. NADROPARIN CALCIUM [Concomitant]
     Active Substance: NADROPARIN CALCIUM
     Indication: PROPHYLAXIS
     Dosage: 0.6 ML, QD
     Route: 065
     Dates: start: 20180226
  9. NADROPARIN CALCIUM [Concomitant]
     Active Substance: NADROPARIN CALCIUM
     Dosage: 0.4 ML, QD
     Route: 065
     Dates: start: 20180224
  10. PHYTOMENADIONE [Concomitant]
     Active Substance: PHYTONADIONE
     Indication: PROPHYLAXIS
     Dosage: 20 MG, QD
     Route: 065
     Dates: start: 20180224
  11. PREDNISON [Concomitant]
     Active Substance: PREDNISONE
     Dosage: 7.5 MG, QD
     Route: 065
     Dates: start: 20180522
  12. CIPROFLOXACIN. [Concomitant]
     Active Substance: CIPROFLOXACIN
     Indication: PROPHYLAXIS
     Dosage: 400 MG, QD
     Route: 065
     Dates: start: 20180223
  13. CALCITRIOL. [Concomitant]
     Active Substance: CALCITRIOL
     Indication: OSTEOPOROSIS
     Dosage: 0.5 ?G, QD
     Dates: start: 20180303
  14. CARVEDILOL. [Concomitant]
     Active Substance: CARVEDILOL
     Indication: PORTAL HYPERTENSION
     Dosage: 6250 MG, QD
     Route: 065
  15. NOREPINEPHRINE. [Concomitant]
     Active Substance: NOREPINEPHRINE
     Indication: PROPHYLAXIS
     Dosage: 2 MG, QD
     Route: 065
     Dates: start: 20180223
  16. ENVARSUS XR [Suspect]
     Active Substance: TACROLIMUS
     Dosage: 12 MG, QD
     Route: 048
     Dates: start: 20180309
  17. PREDNISON [Concomitant]
     Active Substance: PREDNISONE
     Dosage: 15 MG, QD
     Dates: start: 20180424
  18. OMEPRAZOLE. [Concomitant]
     Active Substance: OMEPRAZOLE
     Indication: PROPHYLAXIS
     Dosage: 40 MG, QD
     Route: 065
  19. ENVARSUS XR [Suspect]
     Active Substance: TACROLIMUS
     Dosage: 8 MG, QD
     Route: 048
     Dates: start: 20180522
  20. MYCOPHENOLATE MOFETIL. [Suspect]
     Active Substance: MYCOPHENOLATE MOFETIL
     Indication: IMMUNOSUPPRESSANT DRUG THERAPY
     Dosage: 2000 MG, QD
     Route: 065
     Dates: start: 20180302
  21. METHYLPREDNISOLONE. [Concomitant]
     Active Substance: METHYLPREDNISOLONE
     Indication: IMMUNOSUPPRESSANT DRUG THERAPY
     Dosage: 20 MG, QD
     Route: 065
     Dates: start: 20180302
  22. AZITHROMYCIN ANHYDROUS. [Concomitant]
     Active Substance: AZITHROMYCIN ANHYDROUS
     Indication: PROPHYLAXIS
     Dosage: 214 MG, QD
     Route: 065
     Dates: start: 20180224
  23. MYCLAUSEN [Suspect]
     Active Substance: MYCOPHENOLATE MOFETIL
     Indication: PROPHYLAXIS AGAINST TRANSPLANT REJECTION
     Dosage: 500 MG, QD
     Route: 065
     Dates: start: 20180224
  24. PREDNISON [Concomitant]
     Active Substance: PREDNISONE
     Dosage: 20 MG, QD
     Route: 065
     Dates: start: 20180309
  25. MAGNESIUM [Concomitant]
     Active Substance: MAGNESIUM
     Indication: PROPHYLAXIS
     Dosage: 250 MG, QD
     Dates: start: 20180303
  26. ENVARSUS XR [Suspect]
     Active Substance: TACROLIMUS
     Dosage: 14, MG, QD
     Route: 048
     Dates: start: 20180302
  27. SULFAMETHOXAZOL W/TRIMETOPRIM [Concomitant]
     Active Substance: SULFAMETHOXAZOLE\TRIMETHOPRIM
     Indication: PROPHYLAXIS
     Dosage: 480 MG, QD
     Dates: start: 20180224
  28. ENVARSUS XR [Suspect]
     Active Substance: TACROLIMUS
     Indication: PROPHYLAXIS AGAINST TRANSPLANT REJECTION
     Dosage: 8 MG, QD
     Route: 048
     Dates: start: 20180224
  29. MYCLAUSEN [Suspect]
     Active Substance: MYCOPHENOLATE MOFETIL
     Dosage: 1500 MG, QD
     Dates: start: 20180424
  30. PREDNISON [Concomitant]
     Active Substance: PREDNISONE
     Indication: PROPHYLAXIS AGAINST TRANSPLANT REJECTION
     Dosage: 7.5 MG, QD
     Dates: start: 20180224

REACTIONS (3)
  - Leukopenia [Not Recovered/Not Resolved]
  - Urinary tract infection [Recovered/Resolved]
  - Insomnia [Not Recovered/Not Resolved]

NARRATIVE: CASE EVENT DATE: 20180511
